FAERS Safety Report 17346437 (Version 1)
Quarter: 2020Q1

REPORT INFORMATION
  Report Type: Spontaneous
  Country: DE (occurrence: DE)
  Receive Date: 20200130
  Receipt Date: 20200130
  Transmission Date: 20200409
  Serious: Yes (Hospitalization)
  Sender: FDA-Public Use
  Company Number: NVSC2020DE017629

PATIENT
  Age: 56 Year
  Sex: Male
  Weight: 117 kg

DRUGS (71)
  1. ALLOPURINOL RATIOPHARM [Concomitant]
     Active Substance: ALLOPURINOL
     Indication: BLOOD URIC ACID INCREASED
  2. ERYTHROMYCIN. [Concomitant]
     Active Substance: ERYTHROMYCIN
     Indication: RASH
  3. DOXYCYCLINE. [Concomitant]
     Active Substance: DOXYCYCLINE
     Indication: RASH
     Dosage: 200 MG, QD (100 MILLIGRAM, BID)
     Route: 048
     Dates: start: 20190315
  4. GRANISETRON B. BRAUN [Concomitant]
     Active Substance: GRANISETRON HYDROCHLORIDE
     Indication: PROPHYLACTIC CHEMOTHERAPY
     Dosage: 1 MG, CYCLIC
     Route: 042
     Dates: start: 20181022
  5. HYLO-VISION [Concomitant]
     Active Substance: HYALURONATE SODIUM
     Indication: EYE DISORDER PROPHYLAXIS
     Dosage: 1 OT, BID
     Route: 061
     Dates: start: 20190729
  6. FLUOROURACIL. [Suspect]
     Active Substance: FLUOROURACIL
     Indication: COLORECTAL CANCER METASTATIC
     Dosage: 900 MG
     Route: 040
     Dates: start: 20190429
  7. FLUOROURACIL. [Suspect]
     Active Substance: FLUOROURACIL
     Dosage: 900 MG
     Route: 040
     Dates: start: 20191014
  8. FLUOROURACIL. [Suspect]
     Active Substance: FLUOROURACIL
     Dosage: 5500 MG
     Route: 042
     Dates: start: 20190916
  9. FLUOROURACIL. [Suspect]
     Active Substance: FLUOROURACIL
     Dosage: 925 MG
     Route: 042
     Dates: start: 20190916
  10. FOLINIC ACID [Suspect]
     Active Substance: LEUCOVORIN
     Dosage: 920 MG
     Route: 065
     Dates: start: 20181119
  11. FOLINIC ACID [Suspect]
     Active Substance: LEUCOVORIN
     Dosage: 900 MG
     Route: 065
     Dates: start: 20191014
  12. ALLOPURINOL RATIOPHARM [Concomitant]
     Active Substance: ALLOPURINOL
     Indication: PROPHYLAXIS
     Dosage: 150 MG, QD
     Route: 048
     Dates: start: 19980615
  13. ERYTHROMYCIN. [Concomitant]
     Active Substance: ERYTHROMYCIN
     Indication: PROPHYLAXIS
     Dosage: UNK (AS NECESSARY)
     Route: 061
     Dates: start: 20190306
  14. OXALIPLATIN. [Suspect]
     Active Substance: OXALIPLATIN
     Indication: COLORECTAL CANCER METASTATIC
     Dosage: 195 MG
     Route: 065
     Dates: start: 20181119
  15. FLUOROURACIL. [Suspect]
     Active Substance: FLUOROURACIL
     Dosage: 5600 MG
     Route: 042
     Dates: start: 20190401
  16. FOLINIC ACID [Suspect]
     Active Substance: LEUCOVORIN
     Dosage: 930 MG
     Route: 065
     Dates: start: 20190401
  17. FOLINIC ACID [Suspect]
     Active Substance: LEUCOVORIN
     Dosage: 900 MG
     Route: 065
     Dates: start: 20190429
  18. VECTIBIX [Suspect]
     Active Substance: PANITUMUMAB
     Dosage: 370 MG
     Route: 042
     Dates: start: 20190320
  19. VECTIBIX [Suspect]
     Active Substance: PANITUMUMAB
     Dosage: 460 MG
     Route: 042
     Dates: start: 20190527
  20. AMLODIPIN RATIOPHARM [Concomitant]
     Indication: HYPERTENSION
     Dosage: UNK
     Route: 065
  21. CALCIUM D3 [Concomitant]
     Active Substance: CALCIUM\CHOLECALCIFEROL
     Indication: PROPHYLAXIS
     Dosage: 1000 MG, QD (500 MILLIGRAM, BID  )
     Route: 048
     Dates: start: 20190418
  22. METRONIDAZOLUM [Concomitant]
     Indication: RASH
     Dosage: 1 OT, PRN
     Route: 061
     Dates: start: 20190328
  23. CLINDAMYCIN RATIOPHARM [Concomitant]
     Active Substance: CLINDAMYCIN PHOSPHATE
     Dosage: 1800 MG, QD(600 MILLIGRAM, TID)
     Route: 048
     Dates: end: 20181201
  24. POLYSORBATE 20. [Concomitant]
     Active Substance: POLYSORBATE 20
     Indication: RASH
     Dosage: 1 OT, PRN
     Route: 061
     Dates: start: 20190328
  25. OXALIPLATIN. [Suspect]
     Active Substance: OXALIPLATIN
     Dosage: 150 MG
     Route: 065
     Dates: start: 20190320
  26. FLUOROURACIL. [Suspect]
     Active Substance: FLUOROURACIL
     Dosage: 5400 MG
     Route: 042
     Dates: start: 20191014
  27. FLUOROURACIL. [Suspect]
     Active Substance: FLUOROURACIL
     Dosage: 5500 MG
     Route: 042
     Dates: start: 20181119
  28. FOLINIC ACID [Suspect]
     Active Substance: LEUCOVORIN
     Dosage: 920 MG
     Route: 065
     Dates: start: 20181217
  29. FOLINIC ACID [Suspect]
     Active Substance: LEUCOVORIN
     Dosage: 195 MG
     Route: 065
     Dates: start: 20181203
  30. DOXYCYCLIN RATIOPHARM [Concomitant]
     Indication: RASH
     Dosage: 200 MG, BID
     Route: 048
     Dates: start: 20181214
  31. AMLODIPIN RATIOPHARM [Concomitant]
     Dosage: 5 MG, QD
     Route: 048
     Dates: start: 20100615
  32. BETAGALEN [Concomitant]
     Indication: RASH
     Dosage: 0.1 OT, PRN
     Route: 061
     Dates: start: 20190527
  33. CLINDAMYCIN RATIOPHARM [Concomitant]
     Active Substance: CLINDAMYCIN PHOSPHATE
     Indication: PROPHYLAXIS
     Dosage: 1800 MG, QD(600 MILLIGRAM, TID)
     Route: 048
     Dates: start: 20181119
  34. FORTIMEL [Concomitant]
     Active Substance: DIETARY SUPPLEMENT
     Indication: PROPHYLAXIS
     Dosage: 1 OT, TID
     Route: 048
     Dates: start: 20191014
  35. OXALIPLATIN. [Suspect]
     Active Substance: OXALIPLATIN
     Dosage: 190 MG
     Route: 065
     Dates: start: 20190429
  36. FLUOROURACIL. [Suspect]
     Active Substance: FLUOROURACIL
     Dosage: 4300 MG
     Route: 042
     Dates: start: 20190320
  37. FLUOROURACIL. [Suspect]
     Active Substance: FLUOROURACIL
     Dosage: 925 MG
     Route: 040
     Dates: start: 20181119
  38. FOLINIC ACID [Suspect]
     Active Substance: LEUCOVORIN
     Indication: PRODUCT USED FOR UNKNOWN INDICATION
     Dosage: 920 MG
     Route: 065
     Dates: start: 20190701
  39. FOLINIC ACID [Suspect]
     Active Substance: LEUCOVORIN
     Dosage: 920 MG
     Route: 065
     Dates: start: 20190527
  40. VECTIBIX [Suspect]
     Active Substance: PANITUMUMAB
     Dosage: 480 MG
     Route: 042
     Dates: start: 20190902
  41. VECTIBIX [Suspect]
     Active Substance: PANITUMUMAB
     Dosage: 640 MG
     Route: 042
     Dates: start: 20190513
  42. VECTIBIX [Suspect]
     Active Substance: PANITUMUMAB
     Dosage: 480 MG
     Route: 042
     Dates: start: 20190930
  43. DOXYCYCLIN RATIOPHARM [Concomitant]
     Indication: PROPHYLAXIS
  44. AMLODIPIN RATIOPHARM [Concomitant]
     Dosage: 5 MG, QD
     Route: 048
     Dates: start: 20190420
  45. CELESTAN [Concomitant]
     Active Substance: BETAMETHASONE
     Indication: PROPHYLAXIS
     Dosage: 100 MG, PRN
     Route: 061
     Dates: start: 20190304
  46. FLUOROURACIL. [Suspect]
     Active Substance: FLUOROURACIL
     Dosage: 5500 MG
     Route: 042
     Dates: start: 20190527
  47. FLUOROURACIL. [Suspect]
     Active Substance: FLUOROURACIL
     Dosage: 925 MG
     Route: 040
     Dates: start: 20190401
  48. FLUOROURACIL. [Suspect]
     Active Substance: FLUOROURACIL
     Dosage: 5500 MG
     Route: 040
     Dates: start: 20190902
  49. FLUOROURACIL. [Suspect]
     Active Substance: FLUOROURACIL
     Dosage: 5450 MG
     Route: 042
     Dates: start: 20190429
  50. FOLINIC ACID [Suspect]
     Active Substance: LEUCOVORIN
     Dosage: 930 MG
     Route: 065
     Dates: start: 20190617
  51. VECTIBIX [Suspect]
     Active Substance: PANITUMUMAB
     Indication: COLORECTAL CANCER METASTATIC
     Dosage: 700 MG
     Route: 042
     Dates: start: 20181119
  52. VECTIBIX [Suspect]
     Active Substance: PANITUMUMAB
     Dosage: 700 MG
     Route: 042
     Dates: start: 20190401
  53. VECTIBIX [Suspect]
     Active Substance: PANITUMUMAB
     Dosage: 440 MG
     Route: 042
     Dates: start: 20191014
  54. VECTIBIX [Suspect]
     Active Substance: PANITUMUMAB
     Dosage: 500 MG
     Route: 042
     Dates: start: 20190819
  55. VELMETIA [Concomitant]
     Active Substance: METFORMIN\SITAGLIPTIN
     Indication: DIABETES MELLITUS
     Dosage: 1000 MG(QD,BID)
     Route: 048
     Dates: start: 20120615
  56. METFORMIN [Concomitant]
     Active Substance: METFORMIN HYDROCHLORIDE
     Indication: DIABETES MELLITUS
     Dosage: 1000 MG, BID (50-1000 MILLIGRAM, BID )
     Route: 065
  57. METRONIDAZOLE. [Concomitant]
     Active Substance: METRONIDAZOLE
     Indication: SKIN DISORDER PROPHYLAXIS
     Dosage: 1 MG, PRN
     Route: 061
     Dates: start: 20190218
  58. DEXAMETHASON JENAPHARM [Concomitant]
     Active Substance: DEXAMETHASONE
     Indication: PROPHYLACTIC CHEMOTHERAPY
     Dosage: 8 MG, CYCLIC(4-8 MILLIGRAM, CYCLICAL   )
     Route: 065
     Dates: start: 20181022
  59. FLUOROURACIL. [Suspect]
     Active Substance: FLUOROURACIL
     Dosage: 925 MG
     Route: 040
     Dates: start: 20190527
  60. FLUOROURACIL. [Suspect]
     Active Substance: FLUOROURACIL
     Dosage: 925 MG
     Route: 040
     Dates: start: 20190902
  61. RAMILICH [Concomitant]
     Active Substance: RAMIPRIL
     Indication: PROPHYLAXIS
     Dosage: 5 MG, QD
     Route: 048
     Dates: start: 20100615
  62. ERYTHROMYCINUM [Concomitant]
     Active Substance: ERYTHROMYCIN
     Indication: RASH
     Dosage: 1 OT, PRN
     Route: 061
     Dates: start: 20190306
  63. OXALIPLATIN. [Suspect]
     Active Substance: OXALIPLATIN
     Dosage: 195 MG
     Route: 065
     Dates: start: 20190401
  64. FLUOROURACIL. [Suspect]
     Active Substance: FLUOROURACIL
     Dosage: 700 MG
     Route: 040
     Dates: start: 20190320
  65. FOLINIC ACID [Suspect]
     Active Substance: LEUCOVORIN
     Dosage: 700 MG
     Route: 065
     Dates: start: 20190320
  66. VECTIBIX [Suspect]
     Active Substance: PANITUMUMAB
     Dosage: 470 MG
     Route: 042
     Dates: start: 20190701
  67. VECTIBIX [Suspect]
     Active Substance: PANITUMUMAB
     Dosage: 490 MG
     Route: 042
     Dates: start: 20190916
  68. RAMILICH [Concomitant]
     Active Substance: RAMIPRIL
     Indication: HYPERTENSION
     Dosage: 5 MG, QD
     Route: 048
     Dates: start: 20190420
  69. LIQUIFILM [Concomitant]
     Indication: PROPHYLAXIS
     Dosage: 1 OT, PRN
     Route: 061
     Dates: start: 20181214
  70. GRANISETRON ACTAVIS [Concomitant]
     Indication: PROPHYLACTIC CHEMOTHERAPY
     Dosage: 2 MG, CYCLIC(1-2 MILLIGRAM)
     Route: 048
     Dates: start: 20181022
  71. LANTUS [Concomitant]
     Active Substance: INSULIN GLARGINE
     Indication: DIABETES MELLITUS
     Dosage: 6 OT, QD
     Route: 058
     Dates: start: 20190115

REACTIONS (1)
  - Functional gastrointestinal disorder [Recovering/Resolving]

NARRATIVE: CASE EVENT DATE: 20191022
